FAERS Safety Report 9715321 (Version 1)
Quarter: 2013Q4

REPORT INFORMATION
  Report Type: Report from Study
  Country: US (occurrence: US)
  Receive Date: 20131127
  Receipt Date: 20131127
  Transmission Date: 20140711
  Serious: Yes (Other)
  Sender: FDA-Public Use
  Company Number: US-ROCHE-1306248

PATIENT
  Age: 41 Year
  Sex: Female
  Weight: 74.91 kg

DRUGS (14)
  1. ACTEMRA [Suspect]
     Indication: RHEUMATOID ARTHRITIS
     Route: 042
     Dates: start: 20130907
  2. METHOTREXATE [Concomitant]
     Dosage: 6 TABS
     Route: 048
  3. PREDNISONE [Concomitant]
     Route: 048
  4. DICYCLOMINE [Concomitant]
     Route: 065
  5. FLEXERIL (UNITED STATES) [Concomitant]
     Route: 065
  6. PROZAC [Concomitant]
     Route: 065
  7. FOLIC ACID [Concomitant]
     Route: 065
  8. SYNTHROID [Concomitant]
     Route: 065
  9. NORCO [Concomitant]
     Route: 065
  10. MORPHINE SULFATE [Concomitant]
     Route: 065
  11. XANAX [Concomitant]
     Route: 065
  12. OMEPRAZOLE [Concomitant]
     Route: 065
  13. FISH OIL [Concomitant]
     Route: 065
  14. AMITRIPTYLINE [Concomitant]
     Route: 065

REACTIONS (2)
  - Erythema [Recovered/Resolved]
  - Hyperhidrosis [Recovered/Resolved]
